FAERS Safety Report 10154494 (Version 1)
Quarter: 2014Q2

REPORT INFORMATION
  Report Type: Spontaneous
  Country: US (occurrence: US)
  Receive Date: 20140506
  Receipt Date: 20140506
  Transmission Date: 20141212
  Serious: No
  Sender: FDA-Public Use
  Company Number: US-PFIZER INC-2014118802

PATIENT
  Age: 50 Year
  Sex: Male
  Weight: 147.39 kg

DRUGS (1)
  1. LYRICA [Suspect]
     Indication: NEURALGIA
     Dosage: UNK
     Route: 048
     Dates: start: 2013, end: 20140425

REACTIONS (1)
  - Pain [Not Recovered/Not Resolved]
